FAERS Safety Report 8450779-7 (Version None)
Quarter: 2012Q2

REPORT INFORMATION
  Report Type: 
  Country: None (occurrence: None)
  Receive Date: 20120613
  Receipt Date: 20120607
  Transmission Date: 20120825
  Serious: Yes (Other)
  Sender: FDA-Public Use
  Company Number: AUR-APL-2012-02570

PATIENT
  Age: 36 Year
  Sex: Female
  Weight: 91.9 kg

DRUGS (3)
  1. GABAPENTIN [Suspect]
     Indication: PAIN
     Dosage: 900 MG (300 MG, 3 IN 1 D), UNKNOWN
     Dates: start: 20110712, end: 20110826
  2. GABAPENTIN [Suspect]
     Indication: ULCER
     Dosage: 900 MG (300 MG, 3 IN 1 D), UNKNOWN
     Dates: start: 20110712, end: 20110826
  3. ACETAMINOPHEN W/ CODEINE [Concomitant]

REACTIONS (3)
  - ABORTION SPONTANEOUS [None]
  - PREGNANCY [None]
  - MATERNAL EXPOSURE DURING PREGNANCY [None]
